FAERS Safety Report 23319538 (Version 1)
Quarter: 2023Q4

REPORT INFORMATION
  Report Type: Spontaneous
  Country: US (occurrence: US)
  Receive Date: 20231220
  Receipt Date: 20231220
  Transmission Date: 20240109
  Serious: Yes (Other)
  Sender: FDA-Public Use
  Company Number: US-Accord-285837

PATIENT
  Sex: Female

DRUGS (1)
  1. BUPROPION HYDROCHLORIDE [Suspect]
     Active Substance: BUPROPION HYDROCHLORIDE
     Indication: Attention deficit hyperactivity disorder
     Dosage: EXTENDED-RELEASE TABLETS ?3 TABLETS BY MOUTH EVERY 24 HOURS
     Dates: end: 20221103

REACTIONS (6)
  - Depression [Unknown]
  - Suicidal ideation [Unknown]
  - Feelings of worthlessness [Unknown]
  - Off label use [Unknown]
  - Asthenia [Unknown]
  - Product odour abnormal [Unknown]
